FAERS Safety Report 4565846-8 (Version None)
Quarter: 2005Q1

REPORT INFORMATION
  Report Type: 
  Country: None (occurrence: None)
  Receive Date: 20050128
  Receipt Date: 20050117
  Transmission Date: 20050727
  Serious: Yes (Other)
  Sender: FDA-Public Use
  Company Number: 2005-00191

PATIENT
  Age: 39 Year
  Sex: Female

DRUGS (1)
  1. TRELSTAR DEPOT [Suspect]
     Indication: ENDOMETRIOSIS
     Dosage: 3.75 MG, INTRAMUSCULAR
     Route: 030
     Dates: start: 20041001, end: 20041101

REACTIONS (3)
  - JAUNDICE [None]
  - MAJOR DEPRESSION [None]
  - SUICIDAL IDEATION [None]
